FAERS Safety Report 6081303-4 (Version None)
Quarter: 2009Q1

REPORT INFORMATION
  Report Type: 
  Country: None (occurrence: None)
  Receive Date: 20090209
  Receipt Date: 20090128
  Transmission Date: 20090719
  Serious: Yes (Other)
  Sender: FDA-Public Use
  Company Number: THYM-1000896

PATIENT
  Age: 56 Year
  Sex: Male

DRUGS (1)
  1. THYMOGLOBULIN [Suspect]
     Indication: RENAL TRANSPLANT
     Dosage: UNK, INTRAVENOUS
     Route: 042

REACTIONS (2)
  - DIALYSIS [None]
  - GRAFT DYSFUNCTION [None]
